FAERS Safety Report 5494707-5 (Version None)
Quarter: 2007Q4

REPORT INFORMATION
  Report Type: 
  Country: None (occurrence: None)
  Receive Date: 20071024
  Receipt Date: 20071019
  Transmission Date: 20080405
  Serious: Yes (Hospitalization)
  Sender: FDA-Public Use
  Company Number: US-MERCK-0708USA00799

PATIENT
  Age: 62 Year
  Sex: Female

DRUGS (9)
  1. FOSAMAX [Suspect]
     Indication: OSTEOPOROSIS
     Route: 048
     Dates: start: 19970101, end: 20070701
  2. PROTONIX [Concomitant]
     Route: 065
  3. ASPIRIN [Concomitant]
     Route: 065
  4. LISINOPRIL [Concomitant]
     Route: 065
  5. TRILEPTAL [Concomitant]
     Route: 065
  6. PHENOBARBITAL [Concomitant]
     Route: 065
  7. KEPPRA [Concomitant]
     Route: 065
  8. ADVAIR DISKUS 100/50 [Concomitant]
     Route: 065
  9. CALCIUM (UNSPECIFIED) AND VITAMIN D (UNSPECIFIED) [Concomitant]
     Route: 065

REACTIONS (6)
  - ANOREXIA [None]
  - BLOOD ARSENIC INCREASED [None]
  - CONSTIPATION [None]
  - GASTRIC DISORDER [None]
  - OESOPHAGEAL INJURY [None]
  - VOMITING [None]
